FAERS Safety Report 20910187 (Version 2)
Quarter: 2022Q3

REPORT INFORMATION
  Report Type: Spontaneous
  Country: US (occurrence: US)
  Receive Date: 20220603
  Receipt Date: 20220714
  Transmission Date: 20221027
  Serious: No
  Sender: FDA-Public Use
  Company Number: US-JNJFOC-20220552488

PATIENT
  Age: 82 Year
  Sex: Female

DRUGS (2)
  1. TYLENOL 8 HR ARTHRITIS PAIN [Suspect]
     Active Substance: ACETAMINOPHEN
     Indication: Arthralgia
     Dosage: 2 CAPLETS AT BED TIME.
     Route: 048
     Dates: start: 20220101
  2. CORAL CALCIUM [CALCIUM] [Concomitant]
     Indication: Product used for unknown indication
     Dosage: DAILY FOR YEARS
     Route: 065

REACTIONS (2)
  - Paraesthesia [Recovered/Resolved]
  - Inappropriate schedule of product administration [Unknown]

NARRATIVE: CASE EVENT DATE: 20220101
